FAERS Safety Report 18763595 (Version 1)
Quarter: 2021Q1

REPORT INFORMATION
  Report Type: Spontaneous
  Country: NL (occurrence: NL)
  Receive Date: 20210120
  Receipt Date: 20210120
  Transmission Date: 20210419
  Serious: Yes (Hospitalization)
  Sender: FDA-Public Use
  Company Number: NL-TEVA-2021-NL-1870589

PATIENT
  Age: 47 Year
  Sex: Female
  Weight: 75 kg

DRUGS (4)
  1. OMEPRAZOL CAPSULE MSR 40MG / OMEPRAZOL CF CAPSULE MSR 40MG ? NON?CURRE [Concomitant]
     Dosage: THERAPY START DATE ASKU, THERAPY END DATE ASKU, 40MG
  2. AMLODIPINE TABLET   5MG / BRAND NAME NOT SPECIFIED [Suspect]
     Active Substance: AMLODIPINE BESYLATE
     Indication: HYPERTENSION
     Dosage: 5 MG
     Dates: start: 20200604, end: 20200805
  3. ENALAPRIL TABLET 20MG / BRAND NAME NOT SPECIFIED [Concomitant]
     Active Substance: ENALAPRIL
     Dosage: 20 MG,THERAPY START DATE ASKU, THERAPY END DATE ASKU
  4. BUDESONIDE SMELTTABLET 1MG / JORVEZA ORODISPERGEERBARE TABLET 1MG [Concomitant]
     Dosage: 2 MILLIGRAM DAILY; MELTING TABLET 1 MG 2X DAILY, THERAPY START DATE ASKU, THERAPY END DATE ASKU

REACTIONS (5)
  - Disturbance in attention [Recovered/Resolved]
  - Neck pain [Recovered/Resolved]
  - Fatigue [Recovered/Resolved]
  - Dizziness [Recovered/Resolved]
  - Disorientation [Recovered/Resolved]

NARRATIVE: CASE EVENT DATE: 20200721
